FAERS Safety Report 10151468 (Version 3)
Quarter: 2014Q3

REPORT INFORMATION
  Report Type: Report from Study
  Country: DE (occurrence: DE)
  Receive Date: 20140504
  Receipt Date: 20140814
  Transmission Date: 20150326
  Serious: Yes (Hospitalization)
  Sender: FDA-Public Use
  Company Number: DE-BRISTOL-MYERS SQUIBB COMPANY-16376899

PATIENT
  Age: 52 Year
  Sex: Female

DRUGS (12)
  1. BRILIQUE [Concomitant]
     Active Substance: TICAGRELOR
  2. PREDNISOLONE. [Concomitant]
     Active Substance: PREDNISOLONE
  3. SIMVASTATIN. [Concomitant]
     Active Substance: SIMVASTATIN
  4. IBUPROFEN. [Concomitant]
     Active Substance: IBUPROFEN
  5. LEFLUNOMIDE. [Suspect]
     Active Substance: LEFLUNOMIDE
  6. ACETYLSALICYLIC ACID [Concomitant]
     Active Substance: ASPIRIN
     Dosage: 1 DF=100
  7. VIGANTOLETTEN [Concomitant]
     Active Substance: CHOLECALCIFEROL
  8. METOPROLOL [Concomitant]
     Active Substance: METOPROLOL
  9. DIGIMERCK [Concomitant]
     Active Substance: DIGITOXIN
  10. OMEPRAZOLE. [Concomitant]
     Active Substance: OMEPRAZOLE
  11. FEMOSTON [Concomitant]
     Active Substance: DYDROGESTERONE\ESTRADIOL
  12. ABATACEPT SUBQ INJECTION 125MG/ML [Suspect]
     Active Substance: ABATACEPT
     Route: 058

REACTIONS (2)
  - Peripheral arterial occlusive disease [Not Recovered/Not Resolved]
  - Myocardial infarction [Recovered/Resolved]

NARRATIVE: CASE EVENT DATE: 20131001
